FAERS Safety Report 4694944-3 (Version None)
Quarter: 2005Q2

REPORT INFORMATION
  Report Type: 
  Country: None (occurrence: None)
  Receive Date: 20050617
  Receipt Date: 20050610
  Transmission Date: 20051028
  Serious: Yes (Hospitalization)
  Sender: FDA-Public Use
  Company Number: 200511884GDS

PATIENT
  Age: 78 Year
  Sex: Female

DRUGS (8)
  1. ASPIRIN [Suspect]
     Dosage: 100 MG, TOTAL DAILY, ORAL
     Route: 048
  2. ARTHROTEC [Suspect]
     Dosage: 75 / 0.2 MG, QD, ORAL
     Route: 048
     Dates: end: 20050506
  3. RENITEN (ENALAPRIL) [Suspect]
     Dosage: 10 MG, TOTAL DIALY, ORAL
     Route: 048
     Dates: end: 20050506
  4. LASIX [Suspect]
     Dosage: 40 MG, TOTAL , DAILY, ORAL
     Route: 048
     Dates: end: 20050506
  5. ALDACTONE [Suspect]
     Dosage: 50 MG , TOTAL DAILY
     Dates: end: 20050506
  6. VALPROIC ACID [Concomitant]
  7. EFFEXOR/BEL/ [Concomitant]
  8. NOVOTHYRAL [Concomitant]

REACTIONS (5)
  - DEHYDRATION [None]
  - HYPERKALAEMIA [None]
  - RENAL FAILURE ACUTE [None]
  - SOMNOLENCE [None]
  - TRAUMATIC BRAIN INJURY [None]
